FAERS Safety Report 6978954-9 (Version None)
Quarter: 2010Q3

REPORT INFORMATION
  Report Type: 
  Country: None (occurrence: None)
  Receive Date: 20100913
  Receipt Date: 20100902
  Transmission Date: 20110219
  Serious: Yes (Hospitalization, Other)
  Sender: FDA-Public Use
  Company Number: JP-MERCK-0812USA02225

PATIENT
  Age: 52 Year
  Sex: Male
  Weight: 59 kg

DRUGS (16)
  1. PEPCID RPD [Suspect]
     Indication: GASTRITIS
     Route: 048
     Dates: start: 20081009, end: 20081128
  2. LIPITOR [Suspect]
     Indication: LIPIDS INCREASED
     Route: 048
     Dates: start: 20081009, end: 20081128
  3. MICARDIS [Suspect]
     Indication: HYPERTENSION
     Route: 048
     Dates: start: 20081009, end: 20081128
  4. ASPIRIN [Suspect]
     Indication: ANTIPLATELET THERAPY
     Route: 048
     Dates: start: 20081009, end: 20081128
  5. ASPIRIN [Suspect]
     Route: 048
     Dates: start: 20081218
  6. LASIX [Suspect]
     Indication: CARDIOVASCULAR EVENT PROPHYLAXIS
     Route: 048
     Dates: start: 20081009
  7. LASIX [Suspect]
     Route: 048
     Dates: start: 20081218
  8. ALDACTONE [Suspect]
     Indication: CARDIOVASCULAR EVENT PROPHYLAXIS
     Route: 048
     Dates: start: 20081009, end: 20081128
  9. HERBESSER [Suspect]
     Indication: HYPERTENSION
     Route: 048
     Dates: start: 20081009, end: 20081128
  10. ITOROL [Suspect]
     Indication: CORONARY ARTERY DILATATION
     Route: 048
     Dates: start: 20081009, end: 20081128
  11. ITOROL [Suspect]
     Route: 048
     Dates: start: 20081210
  12. MAGMITT [Concomitant]
     Indication: CONSTIPATION
     Route: 048
     Dates: start: 20081009, end: 20081128
  13. DEPAS [Suspect]
     Indication: ANXIETY
     Route: 048
     Dates: start: 20081009, end: 20081128
  14. DEPAS [Suspect]
     Route: 048
     Dates: start: 20081202
  15. WARFARIN POTASSIUM [Suspect]
     Indication: ANTICOAGULANT THERAPY
     Route: 048
     Dates: start: 20081009, end: 20081128
  16. WARFARIN POTASSIUM [Suspect]
     Route: 048
     Dates: start: 20081202

REACTIONS (1)
  - HEPATITIS ACUTE [None]
